FAERS Safety Report 7610333-3 (Version None)
Quarter: 2011Q3

REPORT INFORMATION
  Report Type: 
  Country: None (occurrence: None)
  Receive Date: 20110707
  Receipt Date: 20110622
  Transmission Date: 20111222
  Serious: Yes (Death)
  Sender: FDA-Public Use
  Company Number: 2010BI021947

PATIENT
  Age: 63 Year
  Sex: Male
  Weight: 73 kg

DRUGS (18)
  1. RITUXIMAB (RITUXIMAB) [Suspect]
     Indication: NON-HODGKIN'S LYMPHOMA RECURRENT
     Dosage: 250 MG/M2, 1X, IV
     Route: 042
  2. RITUXIMAB (RITUXIMAB) [Suspect]
     Indication: STEM CELL TRANSPLANT
     Dosage: 250 MG/M2, 1X, IV
     Route: 042
  3. FLUDARABINE PHOSPHATE [Concomitant]
  4. THYMOGLOBULIN [Concomitant]
  5. CYCLOSPORINE [Concomitant]
  6. FLUDARABINE PHOSPHATE [Suspect]
     Indication: NON-HODGKIN'S LYMPHOMA RECURRENT
     Dosage: 30 MG/M2, QD, IV
     Route: 042
  7. FLUDARABINE PHOSPHATE [Suspect]
     Indication: STEM CELL TRANSPLANT
     Dosage: 30 MG/M2, QD, IV
     Route: 042
  8. BUSULFAN [Concomitant]
  9. CYCLOSPORINE [Suspect]
     Indication: PROPHYLAXIS AGAINST GRAFT VERSUS HOST DISEASE
     Dosage: 2 TO 3 MG/KG2
  10. ZEVALIN [Suspect]
     Indication: NON-HODGKIN'S LYMPHOMA RECURRENT
     Dosage: 0.4 MCI/KG, 1X, IV
     Route: 042
  11. ZEVALIN [Suspect]
     Indication: STEM CELL TRANSPLANT
     Dosage: 0.4 MCI/KG, 1X, IV
     Route: 042
  12. BUSULFAN [Suspect]
     Indication: NON-HODGKIN'S LYMPHOMA
  13. BUSULFAN [Suspect]
     Indication: STEM CELL TRANSPLANT
  14. THYMOGLOBULIN [Suspect]
     Indication: NON-HODGKIN'S LYMPHOMA RECURRENT
     Dosage: 2.5 MG/KG, 1X; IV
     Route: 042
  15. THYMOGLOBULIN [Suspect]
     Indication: STEM CELL TRANSPLANT
     Dosage: 2.5 MG/KG, 1X; IV
     Route: 042
  16. RITUXIMAB (RITUXIMAB) [Suspect]
     Indication: NON-HODGKIN'S LYMPHOMA RECURRENT
     Dosage: 250 MG/M2, 1X, IV
     Route: 042
  17. RITUXIMAB (RITUXIMAB) [Suspect]
     Indication: STEM CELL TRANSPLANT
     Dosage: 250 MG/M2, 1X, IV
     Route: 042
  18. RITUXIMAB [Concomitant]

REACTIONS (1)
  - MULTI-ORGAN FAILURE [None]
